FAERS Safety Report 8800594 (Version 1)
Quarter: 2012Q4

REPORT INFORMATION
  Report Type: Report from Study
  Country: JP (occurrence: JP)
  Receive Date: 20120921
  Receipt Date: 20120921
  Transmission Date: 20130627
  Serious: Yes (Other)
  Sender: FDA-Public Use
  Company Number: JP-VERTEX PHARMACEUTICAL INC.-AE-2012-005829

PATIENT
  Age: 61 Year
  Sex: Female

DRUGS (16)
  1. MEVALOTIN [Concomitant]
     Dosage: 20 mg, UNK
     Route: 048
  2. XYZAL [Concomitant]
     Dosage: 1 DF, UNK
     Route: 048
     Dates: start: 20120229, end: 20120319
  3. XYZAL [Concomitant]
     Dosage: 5 mg, UNK
     Route: 048
     Dates: start: 20120229
  4. PEGASYS [Concomitant]
     Dosage: 90 ?g, UNK
     Route: 058
     Dates: start: 20120411, end: 20120411
  5. PEGASYS [Concomitant]
     Dosage: 45 ?g, UNK
     Route: 058
     Dates: start: 20120425
  6. ADALAT [Concomitant]
     Dosage: 20 mg, qd
     Route: 048
  7. METHYCOBAL [Concomitant]
     Dosage: 1500 ?g, UNK
     Route: 048
  8. METHYCOBAL [Concomitant]
     Dosage: 150 ?g, UNK
     Route: 048
  9. VX-950 [Suspect]
     Indication: HEPATITIS C
     Dosage: 1500 mg, qd
     Route: 048
     Dates: start: 20120229, end: 20120306
  10. VX-950 [Suspect]
     Dosage: 750 mg, UNK
     Dates: start: 20120328, end: 20120331
  11. REBETOL [Concomitant]
     Dosage: 400 mg, qd
     Route: 048
     Dates: start: 20120229, end: 20120306
  12. REBETOL [Concomitant]
     Dosage: 400 mg, UNK
     Route: 048
     Dates: start: 20120328, end: 20120331
  13. PEGINTRON                          /01543001/ [Suspect]
     Indication: HEPATITIS C
     Dosage: 0.76 UNK, UNK
     Route: 058
     Dates: start: 20120229, end: 20120229
  14. PEGINTRON                          /01543001/ [Suspect]
     Dosage: 0.76 UNK, UNK
     Route: 058
     Dates: start: 20120328, end: 20120328
  15. URSO                               /00465701/ [Concomitant]
     Dosage: 600 mg, qd
     Route: 048
  16. MEVALOTIN [Concomitant]
     Dosage: UNK
     Route: 048
     Dates: start: 20120229, end: 20120319

REACTIONS (3)
  - Ascites [Recovered/Resolved]
  - Pleural effusion [Recovered/Resolved]
  - Ascites [Recovered/Resolved]
